FAERS Safety Report 21212100 (Version 4)
Quarter: 2022Q4

REPORT INFORMATION
  Report Type: Spontaneous
  Country: AR (occurrence: AR)
  Receive Date: 20220815
  Receipt Date: 20221013
  Transmission Date: 20230112
  Serious: No
  Sender: FDA-Public Use
  Company Number: AR-PFIZER INC-PV202200034446

PATIENT
  Age: 4 Year
  Sex: Female

DRUGS (1)
  1. GENOTROPIN [Suspect]
     Active Substance: SOMATROPIN
     Indication: Foetal growth restriction
     Dosage: 0.6 TO 1 MG (7 TIMES PER WEEK)
     Dates: start: 20180907

REACTIONS (7)
  - Device failure [Unknown]
  - Device mechanical issue [Unknown]
  - Device difficult to use [Unknown]
  - Poor quality device used [Unknown]
  - Drug dose omission by device [Unknown]
  - Off label use [Unknown]
  - Prescription drug used without a prescription [Unknown]

NARRATIVE: CASE EVENT DATE: 20180907
